FAERS Safety Report 6018665-X (Version None)
Quarter: 2008Q4

REPORT INFORMATION
  Report Type: 
  Country: None (occurrence: None)
  Receive Date: 20081223
  Receipt Date: 20081210
  Transmission Date: 20090506
  Serious: Yes (Death, Life-Threatening)
  Sender: FDA-Public Use
  Company Number: DE-GENENTECH-274119

PATIENT
  Sex: Female

DRUGS (2)
  1. AVASTIN [Suspect]
     Indication: COLON CANCER
     Dosage: 700 MG, UNK
     Dates: start: 20080326, end: 20081126
  2. CAPECITABINE [Suspect]
     Indication: COLON CANCER
     Dosage: 3000 MG, UNK
     Dates: start: 20080319, end: 20081206

REACTIONS (1)
  - SUDDEN CARDIAC DEATH [None]
